FAERS Safety Report 9257814 (Version 1)
Quarter: 2013Q2

REPORT INFORMATION
  Report Type: Spontaneous
  Country: US (occurrence: US)
  Receive Date: 20130426
  Receipt Date: 20130426
  Transmission Date: 20140414
  Serious: No
  Sender: FDA-Public Use
  Company Number: US-GLAXOSMITHKLINE-A0974831A

PATIENT
  Sex: 0

DRUGS (3)
  1. ZOFRAN [Suspect]
     Indication: CYCLIC VOMITING SYNDROME
     Route: 065
  2. COMPAZINE [Suspect]
     Indication: CYCLIC VOMITING SYNDROME
     Route: 065
  3. REGLAN [Suspect]
     Indication: NAUSEA

REACTIONS (1)
  - Cyclic vomiting syndrome [Unknown]
